FAERS Safety Report 10961659 (Version 1)
Quarter: 2015Q1

REPORT INFORMATION
  Report Type: Spontaneous
  Country: GB (occurrence: None)
  Receive Date: 20150325
  Receipt Date: 20150325
  Transmission Date: 20150721
  Serious: Yes (Life-Threatening, Hospitalization)
  Sender: FDA-Public Use
  Company Number: FK201501384

PATIENT
  Age: 72 Year
  Sex: Male

DRUGS (4)
  1. AVASTIN [Suspect]
     Active Substance: BEVACIZUMAB
     Indication: GASTRIC CANCER
     Dosage: 12500
     Dates: start: 20120517
  2. EPIRUBICIN (MANUFACTURER UNKNOWN) (EPIRUBICIN HYDROCHLORIDE) (EPIRUBICIN HYDROCHLORIDE) [Suspect]
     Active Substance: EPIRUBICIN
     Indication: GASTRIC CANCER
     Dosage: 100
     Dates: start: 20120517
  3. XELODA [Suspect]
     Active Substance: CAPECITABINE
     Indication: GASTRIC CANCER
     Dosage: 12500
     Dates: start: 20120517
  4. CISPLATIN. [Suspect]
     Active Substance: CISPLATIN
     Indication: GASTRIC CANCER
     Dosage: 120
     Dates: start: 20120517

REACTIONS (1)
  - Melaena [None]

NARRATIVE: CASE EVENT DATE: 20120704
